FAERS Safety Report 16329381 (Version 2)
Quarter: 2019Q2

REPORT INFORMATION
  Report Type: Spontaneous
  Country: PT (occurrence: PT)
  Receive Date: 20190520
  Receipt Date: 20190612
  Transmission Date: 20190711
  Serious: Yes (Hospitalization, Other)
  Sender: FDA-Public Use
  Company Number: PT-SA-2019SA131960

PATIENT
  Age: 58 Year
  Sex: Male

DRUGS (4)
  1. OXALIPLATIN. [Suspect]
     Active Substance: OXALIPLATIN
     Indication: ADENOCARCINOMA OF COLON
     Dosage: UNK
     Route: 065
  2. AMOXICILLIN AND CLAVULANATE POTASSIUM [Suspect]
     Active Substance: AMOXICILLIN\CLAVULANATE POTASSIUM
     Indication: ABDOMINAL WALL HAEMATOMA
     Dosage: UNK
     Route: 065
  3. FLUORURACILO [Concomitant]
     Indication: ADENOCARCINOMA OF COLON
     Route: 065
  4. LEUCOVORIN [FOLINIC ACID] [Concomitant]
     Active Substance: LEUCOVORIN
     Indication: ADENOCARCINOMA OF COLON
     Dosage: UNK
     Route: 065

REACTIONS (11)
  - Portal tract inflammation [Unknown]
  - Off label use [Recovered/Resolved]
  - Product use in unapproved indication [Unknown]
  - Portal vein dilatation [Unknown]
  - Drug-induced liver injury [Recovered/Resolved]
  - Blood pressure increased [Unknown]
  - Jaundice cholestatic [Unknown]
  - Hyperbilirubinaemia [Recovered/Resolved]
  - Body temperature decreased [Unknown]
  - Splenomegaly [Recovered/Resolved]
  - Cholestasis [Unknown]
